FAERS Safety Report 5869521-9 (Version None)
Quarter: 2008Q3

REPORT INFORMATION
  Report Type: 
  Country: None (occurrence: None)
  Receive Date: 20080828
  Receipt Date: 20080819
  Transmission Date: 20090109
  Serious: Yes (Other)
  Sender: FDA-Public Use
  Company Number: 1000000593

PATIENT
  Age: 74 Year
  Sex: Female
  Weight: 46 kg

DRUGS (4)
  1. MEMANTINE HCL [Suspect]
     Indication: DEMENTIA ALZHEIMER'S TYPE
     Dosage: 20 MG (20 MG, 1 IN 1 D), ORAL
     Route: 048
     Dates: start: 20050922, end: 20080723
  2. SODIUM PICOSULFATE [Concomitant]
  3. ZOLPIDEM TARTRATE [Concomitant]
  4. TIAPRIDE HYDROCHLORIDE [Concomitant]

REACTIONS (3)
  - METASTASES TO LIVER [None]
  - METASTATIC NEOPLASM [None]
  - PERITONSILLAR ABSCESS [None]
